FAERS Safety Report 9638464 (Version 2)
Quarter: 2013Q4

REPORT INFORMATION
  Report Type: Spontaneous
  Country: JP (occurrence: JP)
  Receive Date: 20131022
  Receipt Date: 20131104
  Transmission Date: 20140711
  Serious: Yes (Life-Threatening, Hospitalization)
  Sender: FDA-Public Use
  Company Number: JP-PFIZER INC-2013298295

PATIENT
  Age: 68 Year
  Sex: Female

DRUGS (2)
  1. ATENOLOL [Suspect]
     Dosage: UNK
     Route: 048
  2. AMLODIN [Suspect]
     Dosage: UNK
     Route: 048

REACTIONS (3)
  - Overdose [Unknown]
  - Depressed level of consciousness [Unknown]
  - Hypotension [Recovering/Resolving]
